FAERS Safety Report 6278202-1 (Version None)
Quarter: 2009Q3

REPORT INFORMATION
  Report Type: 
  Country: None (occurrence: None)
  Receive Date: 20090722
  Receipt Date: 20090713
  Transmission Date: 20100115
  Serious: Yes (Other)
  Sender: FDA-Public Use
  Company Number: AU-ASTRAZENECA-2009AP02476

PATIENT
  Age: 18 Month
  Sex: Male

DRUGS (4)
  1. SEROQUEL [Suspect]
     Route: 063
  2. SEROQUEL [Suspect]
     Route: 063
  3. SEROQUEL [Suspect]
     Route: 063
  4. PROZAC [Suspect]

REACTIONS (2)
  - DRUG EXPOSURE VIA BREAST MILK [None]
  - DRUG WITHDRAWAL SYNDROME NEONATAL [None]
